FAERS Safety Report 24035389 (Version 3)
Quarter: 2024Q3

REPORT INFORMATION
  Report Type: Spontaneous
  Country: CZ (occurrence: CZ)
  Receive Date: 20240701
  Receipt Date: 20240807
  Transmission Date: 20241016
  Serious: Yes (Hospitalization, Other)
  Sender: EXELIXIS
  Company Number: CZ-IPSEN Group, Research and Development-2024-12524

PATIENT
  Age: 71 Year
  Sex: Male

DRUGS (3)
  1. CABOMETYX [Suspect]
     Active Substance: CABOZANTINIB S-MALATE
     Indication: Metastatic renal cell carcinoma
     Dosage: 40 MG
     Route: 065
     Dates: start: 20230426
  2. CABOMETYX [Suspect]
     Active Substance: CABOZANTINIB S-MALATE
     Dosage: 40 MG
     Route: 065
  3. NIVOLUMAB [Concomitant]
     Active Substance: NIVOLUMAB
     Indication: Metastatic renal cell carcinoma
     Dosage: 240 MG
     Route: 065
     Dates: start: 20230426

REACTIONS (8)
  - Dementia [Unknown]
  - Disorientation [Unknown]
  - Memory impairment [Unknown]
  - Vascular encephalopathy [Unknown]
  - Behaviour disorder [Unknown]
  - Confusional state [Unknown]
  - Diarrhoea [Unknown]
  - Therapy partial responder [Unknown]

NARRATIVE: CASE EVENT DATE: 20230510
